FAERS Safety Report 14758852 (Version 1)
Quarter: 2018Q2

REPORT INFORMATION
  Report Type: Spontaneous
  Country: US (occurrence: US)
  Receive Date: 20180409
  Receipt Date: 20180409
  Transmission Date: 20180711
  Serious: Yes (Hospitalization)
  Sender: FDA-Public Use
  Company Number: None

PATIENT
  Sex: Female

DRUGS (9)
  1. LETROZOLE. [Concomitant]
     Active Substance: LETROZOLE
  2. TURMERIC [Concomitant]
     Active Substance: HERBALS\TURMERIC
  3. HAIR/SKIN/NAILS TAB [Concomitant]
  4. PROBIOTIC [Concomitant]
     Active Substance: PROBIOTICS NOS
  5. XANAX [Concomitant]
     Active Substance: ALPRAZOLAM
  6. IBRANCE [Suspect]
     Active Substance: PALBOCICLIB
     Indication: PLASMA CELL MYELOMA
     Route: 048
     Dates: start: 20171013
  7. GABAPENTIN. [Concomitant]
     Active Substance: GABAPENTIN
  8. VITAMIN D3 [Concomitant]
     Active Substance: CHOLECALCIFEROL
  9. CALCIUM/D3 [Concomitant]
     Active Substance: CALCIUM\CHOLECALCIFEROL

REACTIONS (1)
  - Surgery [None]
